FAERS Safety Report 9461448 (Version 4)
Quarter: 2016Q2

REPORT INFORMATION
  Report Type: Report from Study
  Country: CA (occurrence: CA)
  Receive Date: 20130816
  Receipt Date: 20160608
  Transmission Date: 20160815
  Serious: Yes (Hospitalization, Other)
  Sender: FDA-Public Use
  Company Number: PHHY2013CA045911

PATIENT
  Sex: Female

DRUGS (2)
  1. TASIGNA [Suspect]
     Active Substance: NILOTINIB
     Dosage: 400 MG, QD
     Route: 048
  2. TASIGNA [Suspect]
     Active Substance: NILOTINIB
     Indication: CHRONIC MYELOID LEUKAEMIA
     Dosage: 400 MG, QD
     Route: 048
     Dates: start: 200701

REACTIONS (11)
  - Pain [Unknown]
  - Gastrointestinal haemorrhage [Unknown]
  - Fatigue [Not Recovered/Not Resolved]
  - Restless legs syndrome [Recovering/Resolving]
  - Hand fracture [Unknown]
  - Pain in extremity [Unknown]
  - Sunburn [Unknown]
  - Bone pain [Unknown]
  - Faeces discoloured [Recovered/Resolved]
  - Feeling abnormal [Unknown]
  - Full blood count decreased [Recovering/Resolving]
